FAERS Safety Report 22262637 (Version 1)
Quarter: 2023Q2

REPORT INFORMATION
  Report Type: Spontaneous
  Country: None (occurrence: US)
  Receive Date: 20230428
  Receipt Date: 20230428
  Transmission Date: 20230721
  Serious: No
  Sender: FDA-Public Use
  Company Number: US-P+L Developments of Newyork Corporation-2140879

PATIENT
  Age: 34 Year
  Sex: Female

DRUGS (1)
  1. LORATADINE AND PSEUDOEPHEDRINE SULFATE [Suspect]
     Active Substance: LORATADINE\PSEUDOEPHEDRINE SULFATE
     Indication: Hypersensitivity
     Route: 048
     Dates: end: 20230420

REACTIONS (10)
  - Nervousness [Not Recovered/Not Resolved]
  - Tremor [Unknown]
  - Headache [Unknown]
  - Dry mouth [Unknown]
  - Confusional state [Unknown]
  - Thirst [Unknown]
  - Drug ineffective [Unknown]
  - Insomnia [Unknown]
  - Agitation [Unknown]
  - Thinking abnormal [Unknown]
